FAERS Safety Report 5628764-X (Version None)
Quarter: 2008Q1

REPORT INFORMATION
  Report Type: 
  Country: None (occurrence: None)
  Receive Date: 20080215
  Receipt Date: 20080215
  Transmission Date: 20080703
  Serious: No
  Sender: FDA-Public Use
  Company Number: None

PATIENT
  Age: 25 Year
  Sex: Female
  Weight: 65.7716 kg

DRUGS (1)
  1. CHANTIX [Suspect]
     Indication: SMOKING CESSATION THERAPY
     Dosage: .5 - DAYS 1-3, .5 -DAYS 4-7- 1X DAILY, THEN 2X D PO : 1.0 1X DAILY PO
     Route: 048
     Dates: start: 20070724, end: 20070901

REACTIONS (6)
  - AGGRESSION [None]
  - ANGER [None]
  - DEPRESSION [None]
  - EARLY MORNING AWAKENING [None]
  - NIGHTMARE [None]
  - SUICIDE ATTEMPT [None]
